FAERS Safety Report 11382537 (Version 2)
Quarter: 2015Q3

REPORT INFORMATION
  Report Type: Spontaneous
  Country: CH (occurrence: CH)
  Receive Date: 20150814
  Receipt Date: 20150915
  Transmission Date: 20151125
  Serious: Yes (Other)
  Sender: FDA-Public Use
  Company Number: CH-LPDUSPRD-20150606

PATIENT
  Age: 40 Year
  Sex: Female

DRUGS (1)
  1. VENOFER [Suspect]
     Active Substance: IRON SUCROSE
     Dosage: 200 MG 2 TIMES TOTAL
     Route: 041
     Dates: start: 20150612, end: 20150612

REACTIONS (9)
  - Rash erythematous [Unknown]
  - Infusion site erythema [Unknown]
  - Pain in extremity [Unknown]
  - Skin discolouration [Unknown]
  - Infusion site swelling [Unknown]
  - Wrong technique in product usage process [Unknown]
  - Rash maculo-papular [Unknown]
  - Extravasation [Unknown]
  - Infusion site pain [Unknown]

NARRATIVE: CASE EVENT DATE: 201506
